FAERS Safety Report 20602132 (Version 1)
Quarter: 2022Q1

REPORT INFORMATION
  Report Type: Spontaneous
  Country: CA (occurrence: CA)
  Receive Date: 20220316
  Receipt Date: 20220316
  Transmission Date: 20220423
  Serious: Yes (Other)
  Sender: FDA-Public Use
  Company Number: CA-TARO-2022TAR00373

PATIENT

DRUGS (1)
  1. WARFARIN [Suspect]
     Active Substance: WARFARIN
     Indication: Antiphospholipid syndrome
     Dosage: UNK
     Route: 065
     Dates: start: 200210, end: 200510

REACTIONS (5)
  - Splenic infarction [Unknown]
  - Iron deficiency [Unknown]
  - Haemorrhage [Unknown]
  - Heavy menstrual bleeding [Unknown]
  - Gastrointestinal haemorrhage [Unknown]
